FAERS Safety Report 18106401 (Version 1)
Quarter: 2020Q3

REPORT INFORMATION
  Report Type: Spontaneous
  Country: US (occurrence: US)
  Receive Date: 20200803
  Receipt Date: 20200803
  Transmission Date: 20201103
  Serious: No
  Sender: FDA-Public Use
  Company Number: None

PATIENT
  Age: 35 Year
  Sex: Female
  Weight: 88.2 kg

DRUGS (3)
  1. LATISSE [Suspect]
     Active Substance: BIMATOPROST
     Indication: PRODUCT USED FOR UNKNOWN INDICATION
     Route: 061
     Dates: start: 20180930, end: 20200301
  2. BIMATOPROST. [Suspect]
     Active Substance: BIMATOPROST
     Indication: PRODUCT USED FOR UNKNOWN INDICATION
     Dates: start: 20180930, end: 20200301
  3. VITAMIN [Concomitant]
     Active Substance: VITAMINS

REACTIONS (2)
  - Skin hyperpigmentation [None]
  - Chloasma [None]

NARRATIVE: CASE EVENT DATE: 20200601
